FAERS Safety Report 10135853 (Version 2)
Quarter: 2014Q2

REPORT INFORMATION
  Report Type: Spontaneous
  Country: JP (occurrence: JP)
  Receive Date: 20140428
  Receipt Date: 20140428
  Transmission Date: 20141212
  Serious: Yes (Other)
  Sender: FDA-Public Use
  Company Number: JP-TAKEDA-2014TJP002228

PATIENT
  Age: 51 Year
  Sex: Male

DRUGS (3)
  1. TAKEPRON OD TABLETS 30 [Suspect]
     Indication: GASTROOESOPHAGEAL REFLUX DISEASE
     Dosage: 30 MG, QD
     Route: 048
     Dates: start: 2006, end: 20080530
  2. TAKEPRON OD TABLETS 30 [Suspect]
     Dosage: 15 MG, QD
     Route: 048
     Dates: start: 20080531, end: 20100130
  3. TAKEPRON OD TABLETS 30 [Suspect]
     Dosage: 30 MG, QD
     Route: 048
     Dates: start: 20100131, end: 20140301

REACTIONS (1)
  - Blood creatine phosphokinase increased [Unknown]
